FAERS Safety Report 17735563 (Version 1)
Quarter: 2020Q2

REPORT INFORMATION
  Report Type: Report from Study
  Country: IT (occurrence: IT)
  Receive Date: 20200501
  Receipt Date: 20200501
  Transmission Date: 20200714
  Serious: Yes (Hospitalization)
  Sender: FDA-Public Use
  Company Number: IT-TEVA-2020-IT-1228252

PATIENT
  Age: 68 Year
  Sex: Female

DRUGS (8)
  1. KCL-RETARD 600 MG COMPRESSE A RILASCIO PROLUNGATO [Concomitant]
     Active Substance: POTASSIUM CHLORIDE
  2. RITONAVIR. [Suspect]
     Active Substance: RITONAVIR
     Indication: CORONAVIRUS INFECTION
     Dosage: 2 DOSAGE FORMS
     Route: 048
     Dates: start: 20200326, end: 20200330
  3. REZOLSTA 800 MG/150 MG FILM-COATED TABLETS [Suspect]
     Active Substance: COBICISTAT\DARUNAVIR ETHANOLATE
     Indication: CORONAVIRUS INFECTION
     Dosage: 1 DOSAGE FORMS
     Route: 048
     Dates: start: 20200324, end: 20200326
  4. CEFTRIAXONE MYLAN GENERICS 1000 MG POLVERE PER SOLUZIONE INIETTABILE [Concomitant]
  5. PANTORC 40 MG COMPRESSE GASTRORESISTENTI [Concomitant]
  6. ZITROMAX 500 MG COMPRESSE RIVESTITE CON FILM [Concomitant]
     Active Substance: AZITHROMYCIN
  7. DARUNAVIR [Suspect]
     Active Substance: DARUNAVIR
     Indication: CORONAVIRUS INFECTION
     Dosage: 1 DOSAGE FORMS
     Route: 048
     Dates: start: 20200326, end: 20200330
  8. CLEXANE [Concomitant]
     Active Substance: ENOXAPARIN SODIUM

REACTIONS (1)
  - Pancreatitis acute [Recovering/Resolving]

NARRATIVE: CASE EVENT DATE: 20200401
